FAERS Safety Report 24850773 (Version 1)
Quarter: 2025Q1

REPORT INFORMATION
  Report Type: Spontaneous
  Country: US (occurrence: US)
  Receive Date: 20250116
  Receipt Date: 20250116
  Transmission Date: 20250409
  Serious: No
  Sender: SK LIFE SCIENCE
  Company Number: US-SK LIFE SCIENCE, INC-SKPVG-2024-000396

PATIENT

DRUGS (22)
  1. XCOPRI [Suspect]
     Active Substance: CENOBAMATE
     Indication: Seizure
     Route: 048
     Dates: start: 20231224, end: 20240106
  2. XCOPRI [Suspect]
     Active Substance: CENOBAMATE
     Route: 048
     Dates: start: 20240107, end: 20240120
  3. XCOPRI [Suspect]
     Active Substance: CENOBAMATE
     Route: 048
     Dates: start: 20240121, end: 20240203
  4. XCOPRI [Suspect]
     Active Substance: CENOBAMATE
     Route: 048
     Dates: start: 20240204, end: 20240217
  5. XCOPRI [Suspect]
     Active Substance: CENOBAMATE
     Route: 048
     Dates: start: 20240218, end: 20240302
  6. XCOPRI [Suspect]
     Active Substance: CENOBAMATE
     Route: 048
     Dates: start: 20240303, end: 20240304
  7. XCOPRI [Suspect]
     Active Substance: CENOBAMATE
     Dosage: 100 MILLIGRAM ONCE A DAY AT BEDTIME
     Route: 048
     Dates: start: 20240305
  8. XCOPRI [Suspect]
     Active Substance: CENOBAMATE
     Dosage: 100 MILLIGRAM ONCE A DAY AT BEDTIME
     Route: 048
  9. XCOPRI [Suspect]
     Active Substance: CENOBAMATE
     Dosage: 100 MILLIGRAM ONCE A DAY AT BEDTIME
     Route: 048
     Dates: end: 20240516
  10. XCOPRI [Suspect]
     Active Substance: CENOBAMATE
     Dosage: 150 MILLIGRAM, DAILY
     Route: 048
     Dates: start: 20240517, end: 20240723
  11. XCOPRI [Suspect]
     Active Substance: CENOBAMATE
     Dosage: 200 MILLIGRAM, ONCE A DAY, IN THE MORNING
     Route: 048
     Dates: start: 20240724, end: 20240819
  12. XCOPRI [Suspect]
     Active Substance: CENOBAMATE
     Dosage: 250 MILLIGRAM, 1/DAY
     Route: 048
     Dates: start: 20240820
  13. BRIVIACT [Suspect]
     Active Substance: BRIVARACETAM
     Indication: Seizure
     Route: 065
  14. BRIVIACT [Suspect]
     Active Substance: BRIVARACETAM
     Route: 065
     Dates: start: 20240812
  15. LAMOTRIGINE [Concomitant]
     Active Substance: LAMOTRIGINE
     Indication: Seizure
     Dosage: 200 MILLIGRAM, BID
     Route: 065
  16. LAMOTRIGINE [Concomitant]
     Active Substance: LAMOTRIGINE
     Dosage: 400 MILLIGRAM, BID
     Route: 065
  17. OXCARBAZEPINE [Concomitant]
     Active Substance: OXCARBAZEPINE
     Indication: Seizure
     Dosage: 9 MILLILITER, BID
     Route: 065
  18. TIMOLOL MALEATE [Concomitant]
     Active Substance: TIMOLOL MALEATE
     Indication: Glaucoma
     Dosage: OPHTHALMIC SOLUTION 0.25% EYE DROP (ONE DROP IN RIGHT EYE ONLY TWICE A DAY)
     Route: 047
  19. MULTI VITAMIN                      /08408501/ [Concomitant]
     Indication: Product used for unknown indication
     Route: 065
  20. METAMUCIL                          /00029101/ [Concomitant]
     Indication: Product used for unknown indication
     Route: 065
  21. FERROUS SULFATE [Concomitant]
     Active Substance: FERROUS SULFATE
     Indication: Iron deficiency
     Route: 065
  22. LORATADINE [Concomitant]
     Active Substance: LORATADINE
     Indication: Hypersensitivity
     Route: 065

REACTIONS (2)
  - Somnolence [Recovering/Resolving]
  - Dizziness [Recovering/Resolving]

NARRATIVE: CASE EVENT DATE: 20240220
